FAERS Safety Report 5742160-6 (Version None)
Quarter: 2008Q2

REPORT INFORMATION
  Report Type: 
  Country: None (occurrence: None)
  Receive Date: 20080519
  Receipt Date: 20080514
  Transmission Date: 20081010
  Serious: Yes (Death)
  Sender: FDA-Public Use
  Company Number: FR-BRISTOL-MYERS SQUIBB COMPANY-14192256

PATIENT
  Age: 48 Year
  Sex: Male

DRUGS (3)
  1. ABILIFY [Suspect]
     Route: 048
  2. RISPERIDONE [Suspect]
  3. LOXAPINE HCL [Suspect]
     Indication: DELUSION

REACTIONS (1)
  - MYOCARDIAL INFARCTION [None]
